FAERS Safety Report 22087111 (Version 2)
Quarter: 2023Q2

REPORT INFORMATION
  Report Type: Spontaneous
  Country: US (occurrence: US)
  Receive Date: 20230313
  Receipt Date: 20230413
  Transmission Date: 20230722
  Serious: Yes (Death, Other)
  Sender: FDA-Public Use
  Company Number: US-ALXN-A202302884

PATIENT
  Age: 21 Year
  Sex: Male

DRUGS (2)
  1. SOLIRIS [Suspect]
     Active Substance: ECULIZUMAB
     Indication: Posterior reversible encephalopathy syndrome
     Dosage: 2100 MG, UNK
     Route: 065
  2. SOLIRIS [Suspect]
     Active Substance: ECULIZUMAB
     Indication: Off label use

REACTIONS (4)
  - Multiple organ dysfunction syndrome [Fatal]
  - Purpura fulminans [Fatal]
  - Disseminated intravascular coagulation [Fatal]
  - Off label use [Unknown]
